FAERS Safety Report 6810050-3 (Version None)
Quarter: 2010Q2

REPORT INFORMATION
  Report Type: 
  Country: None (occurrence: None)
  Receive Date: 20100630
  Receipt Date: 20100616
  Transmission Date: 20101027
  Serious: Yes (Hospitalization, Other)
  Sender: FDA-Public Use
  Company Number: BR-ROCHE-697989

PATIENT
  Sex: Female
  Weight: 76 kg

DRUGS (3)
  1. XENICAL [Suspect]
     Indication: WEIGHT CONTROL
     Dosage: FREQUENCY: 2 CAPS/DAY; START  AND STOP DATE: 1991-1993
     Route: 048
     Dates: start: 19910101, end: 19910101
  2. METFORMIN HCL [Suspect]
     Indication: DIABETES MELLITUS
     Route: 065
  3. INFLUENZA H1N1 VACCINE [Suspect]
     Dosage: DRUG: INFLUENZA A H1N1 VACCINE
     Route: 065
     Dates: start: 20100101, end: 20100101

REACTIONS (11)
  - ABDOMINAL PAIN [None]
  - ANAPHYLACTIC SHOCK [None]
  - ARTERIAL DISORDER [None]
  - COUGH [None]
  - DIARRHOEA [None]
  - ILL-DEFINED DISORDER [None]
  - INFARCTION [None]
  - INSOMNIA [None]
  - MALAISE [None]
  - TYPE 2 DIABETES MELLITUS [None]
  - WEIGHT INCREASED [None]
